FAERS Safety Report 21976542 (Version 1)
Quarter: 2023Q1

REPORT INFORMATION
  Report Type: Report from Study
  Country: US (occurrence: US)
  Receive Date: 20230210
  Receipt Date: 20230210
  Transmission Date: 20230418
  Serious: Yes (Hospitalization, Other)
  Sender: FDA-Public Use
  Company Number: US-ABBVIE-4299764

PATIENT
  Sex: Male

DRUGS (2)
  1. IMBRUVICA [Suspect]
     Active Substance: IBRUTINIB
     Indication: B-cell prolymphocytic leukaemia
     Route: 048
     Dates: start: 20190912, end: 202301
  2. IMBRUVICA [Suspect]
     Active Substance: IBRUTINIB
     Indication: B-cell prolymphocytic leukaemia
     Route: 048
     Dates: start: 202301

REACTIONS (3)
  - Hospitalisation [Unknown]
  - Lung carcinoma cell type unspecified stage I [Unknown]
  - Paranasal sinus hypersecretion [Unknown]
